FAERS Safety Report 4753244-3 (Version None)
Quarter: 2005Q3

REPORT INFORMATION
  Report Type: 
  Country: None (occurrence: None)
  Receive Date: 20050826
  Receipt Date: 20050819
  Transmission Date: 20060218
  Serious: Yes (Hospitalization)
  Sender: FDA-Public Use
  Company Number: PHRM2005FR02312

PATIENT
  Age: 40 Year
  Sex: Male

DRUGS (1)
  1. LEPONEX [Suspect]
     Indication: SCHIZOPHRENIA
     Dosage: 50 MG, BID
     Route: 048
     Dates: start: 19950101

REACTIONS (7)
  - BRONCHIAL CARCINOMA [None]
  - CARDIOMYOPATHY [None]
  - HYPERTENSION [None]
  - LUNG DISORDER [None]
  - PLEURAL EFFUSION [None]
  - PULMONARY MASS [None]
  - RENAL FAILURE [None]
